FAERS Safety Report 19502668 (Version 1)
Quarter: 2021Q3

REPORT INFORMATION
  Report Type: Spontaneous
  Country: DE (occurrence: DE)
  Receive Date: 20210707
  Receipt Date: 20210707
  Transmission Date: 20211014
  Serious: Yes (Hospitalization)
  Sender: FDA-Public Use
  Company Number: DE-TEVA-2021-DE-1929490

PATIENT
  Age: 52 Year
  Sex: Female
  Weight: 67 kg

DRUGS (5)
  1. PREDNISOLON [Suspect]
     Active Substance: PREDNISOLONE
     Dosage: 5 MG, ACCORDING TO THE SCHEME
     Route: 048
  2. LEVOTHYROXIN?NATRIUM [Concomitant]
     Active Substance: LEVOTHYROXINE SODIUM
     Dosage: 112 MICROGRAM DAILY; 1?0?0?0
     Route: 048
  3. TELMISARTAN. [Concomitant]
     Active Substance: TELMISARTAN
     Dosage: 80 MILLIGRAM DAILY; 1?0?0?0
     Route: 048
  4. AZATHIOPRIN [Suspect]
     Active Substance: AZATHIOPRINE
     Dosage: 25 MILLIGRAM DAILY; 0?1?0?0
     Route: 048
  5. HYDROXYCHLOROQUIN [Suspect]
     Active Substance: HYDROXYCHLOROQUINE SULFATE
     Dosage: 200 MILLIGRAM DAILY; 0?1?0?0
     Route: 048

REACTIONS (4)
  - Dysuria [Unknown]
  - Abdominal pain [Unknown]
  - Abdominal pain lower [Unknown]
  - Nausea [Unknown]
